FAERS Safety Report 5076732-1 (Version None)
Quarter: 2006Q3

REPORT INFORMATION
  Report Type: 
  Country: None (occurrence: None)
  Receive Date: 20060807
  Receipt Date: 20060727
  Transmission Date: 20061208
  Serious: Yes (Hospitalization)
  Sender: FDA-Public Use
  Company Number: DE200607005213

PATIENT
  Age: 30 Year
  Sex: Female

DRUGS (6)
  1. CYMBALTA [Suspect]
     Indication: DEPRESSION
     Dosage: 60 MG, DAILY (1/D), ORAL
     Route: 048
     Dates: start: 20051001
  2. ERGENYL CHRONO (VALPROATE SODIUM, VALPROIC ACID) [Concomitant]
  3. DICLOFENAC (DICLOFENAC) [Concomitant]
  4. VALORON (TILIDINE HYDROCHLORIDE) [Concomitant]
  5. NOVALGIN /SCH/ (METAMIZOLE SODIUM MONOHYDRATE) [Concomitant]
  6. IBUPROFEN [Concomitant]

REACTIONS (2)
  - CARTILAGE INJURY [None]
  - DRUG INEFFECTIVE [None]
